FAERS Safety Report 8274147-6 (Version None)
Quarter: 2012Q2

REPORT INFORMATION
  Report Type: 
  Country: None (occurrence: None)
  Receive Date: 20120411
  Receipt Date: 20120405
  Transmission Date: 20120825
  Serious: Yes (Other)
  Sender: FDA-Public Use
  Company Number: US-PFIZER INC-2012087216

PATIENT
  Sex: Male
  Weight: 67.1 kg

DRUGS (12)
  1. TIZANIDINE [Concomitant]
     Indication: MUSCLE RELAXANT THERAPY
     Dosage: 4 MG, AS NEEDED
  2. ZINC [Concomitant]
     Dosage: 500 MG, DAILY
  3. ATRIPLA [Concomitant]
     Indication: HIV INFECTION
     Dosage: UNK, DAILY
  4. ZOLOFT [Concomitant]
     Indication: DEPRESSION
     Dosage: 100 MG, 2X/DAY
  5. VITAMIN D [Concomitant]
     Dosage: 5000 IU, DAILY
  6. LYRICA [Suspect]
     Dosage: 150 MG, 2X/DAY
     Route: 048
  7. FOLIC ACID [Concomitant]
     Dosage: 800 MG, DAILY
  8. LYRICA [Suspect]
     Indication: NEUROPATHY PERIPHERAL
     Dosage: 300 MG, 2X/DAY
     Route: 048
  9. MARINOL [Concomitant]
     Indication: APPETITE DISORDER
     Dosage: 10 MG, 2X/DAY
  10. METOPROLOL [Concomitant]
     Indication: CARDIAC DISORDER
     Dosage: 25 MG, 2X/DAY
  11. FISH OIL [Concomitant]
     Dosage: 400 MG, 2X/DAY
  12. VITAMIN D [Concomitant]
     Dosage: 100 MG, DAILY

REACTIONS (1)
  - PAIN [None]
